FAERS Safety Report 18338660 (Version 1)
Quarter: 2020Q4

REPORT INFORMATION
  Report Type: Spontaneous
  Country: DE (occurrence: DE)
  Receive Date: 20201002
  Receipt Date: 20201002
  Transmission Date: 20210113
  Serious: Yes (Other)
  Sender: FDA-Public Use
  Company Number: DE-TEVA-2020-DE-1835921

PATIENT
  Age: 60 Year
  Sex: Male

DRUGS (2)
  1. AMITRIPTYLIN [Concomitant]
     Active Substance: AMITRIPTYLINE
     Dosage: DOSAGE REDUCED
  2. AJOVY [Suspect]
     Active Substance: FREMANEZUMAB-VFRM
     Indication: MIGRAINE
     Dates: start: 202003

REACTIONS (3)
  - Eye infection bacterial [Unknown]
  - Dacryostenosis acquired [Unknown]
  - Lacrimation disorder [Unknown]

NARRATIVE: CASE EVENT DATE: 202004
